FAERS Safety Report 7709165-7 (Version None)
Quarter: 2011Q3

REPORT INFORMATION
  Report Type: 
  Country: None (occurrence: None)
  Receive Date: 20110825
  Receipt Date: 20110817
  Transmission Date: 20111222
  Serious: Yes (Other)
  Sender: FDA-Public Use
  Company Number: PHHY2011GB73853

PATIENT
  Sex: Female

DRUGS (2)
  1. SYNTOCINON [Suspect]
  2. SYNTOMETRINE [Suspect]
     Dosage: 1 ML, UNK
     Route: 030

REACTIONS (12)
  - WRONG DRUG ADMINISTERED [None]
  - RESPIRATORY FAILURE [None]
  - PCO2 INCREASED [None]
  - HYPOTONIA NEONATAL [None]
  - CYANOSIS [None]
  - RESPIRATION ABNORMAL [None]
  - HYPOPNOEA [None]
  - OEDEMA [None]
  - CONVULSION [None]
  - PO2 DECREASED [None]
  - OPISTHOTONUS [None]
  - BASE EXCESS ABNORMAL [None]
